FAERS Safety Report 9113218 (Version 2)
Quarter: 2013Q1

REPORT INFORMATION
  Report Type: Spontaneous
  Country: DE (occurrence: DE)
  Receive Date: 20130211
  Receipt Date: 20130227
  Transmission Date: 20140127
  Serious: Yes (Hospitalization)
  Sender: FDA-Public Use
  Company Number: DE-BAXTER-2013BAX004244

PATIENT
  Age: 55 Year
  Sex: Male
  Weight: 73 kg

DRUGS (5)
  1. EXTRANEAL [Suspect]
     Indication: PERITONEAL DIALYSIS
     Route: 033
     Dates: start: 20120906, end: 20120917
  2. EXTRANEAL [Suspect]
     Route: 033
     Dates: start: 20120824, end: 20120905
  3. AMIODARON [Concomitant]
     Indication: HYPOTHYROIDISM
     Route: 065
  4. LANTUS [Concomitant]
     Indication: DIABETES MELLITUS
     Route: 065
  5. ACTRAPID [Concomitant]
     Indication: DIABETES MELLITUS
     Route: 065

REACTIONS (2)
  - Drug eruption [Recovered/Resolved]
  - Dyspnoea [Recovered/Resolved]
